FAERS Safety Report 5409263-7 (Version None)
Quarter: 2007Q3

REPORT INFORMATION
  Report Type: 
  Country: None (occurrence: None)
  Receive Date: 20070809
  Receipt Date: 20070730
  Transmission Date: 20080115
  Serious: Yes (Other)
  Sender: FDA-Public Use
  Company Number: PHEH2004US01899

PATIENT
  Age: 82 Year
  Sex: Female
  Weight: 61.224 kg

DRUGS (3)
  1. ZELNORM [Suspect]
     Indication: CONSTIPATION
     Dosage: UNK/UNK
     Route: 048
     Dates: start: 20031201, end: 20040101
  2. ELECTRICAL STIMULATION THERAPY [Suspect]
  3. SYNTHROID [Concomitant]
     Indication: HYPOTHYROIDISM

REACTIONS (34)
  - ALOPECIA [None]
  - ARTHRALGIA [None]
  - ARTHROPATHY [None]
  - ASTHENIA [None]
  - BACK PAIN [None]
  - BONE PAIN [None]
  - CARDIAC DISORDER [None]
  - DECREASED ACTIVITY [None]
  - DRUG INEFFECTIVE [None]
  - FALL [None]
  - FEELING ABNORMAL [None]
  - GAIT DISTURBANCE [None]
  - HYPERHIDROSIS [None]
  - INFECTION [None]
  - JOINT CONTRACTURE [None]
  - LIGAMENT DISORDER [None]
  - LOSS OF CONSCIOUSNESS [None]
  - MUSCULAR WEAKNESS [None]
  - MUSCULOSKELETAL DISORDER [None]
  - MYALGIA [None]
  - NEUROMYOPATHY [None]
  - OEDEMA PERIPHERAL [None]
  - PAIN [None]
  - PAIN IN EXTREMITY [None]
  - PARAESTHESIA [None]
  - SKIN DISORDER [None]
  - SWEAT GLAND DISORDER [None]
  - TENDON DISORDER [None]
  - THERMAL BURN [None]
  - TONGUE COATED [None]
  - TREMOR [None]
  - VISUAL ACUITY REDUCED [None]
  - WEIGHT DECREASED [None]
  - WOUND [None]
